FAERS Safety Report 8230871-2 (Version None)
Quarter: 2012Q1

REPORT INFORMATION
  Report Type: 
  Country: None (occurrence: None)
  Receive Date: 20120323
  Receipt Date: 20120316
  Transmission Date: 20120608
  Serious: Yes (Death, Hospitalization)
  Sender: FDA-Public Use
  Company Number: FR-BRISTOL-MYERS SQUIBB COMPANY-16461303

PATIENT
  Age: 89 Year
  Sex: Male

DRUGS (7)
  1. ALPRAZOLAM [Concomitant]
  2. MEPROBAMATE [Concomitant]
  3. ACETAMINOPHEN [Concomitant]
  4. OXAZEPAM [Concomitant]
  5. COUMADIN [Suspect]
     Indication: DEEP VEIN THROMBOSIS
     Dosage: 1DF:0.5/D
     Dates: start: 20110908
  6. TIAPRIDAL [Concomitant]
     Route: 048
     Dates: start: 20110916
  7. TAMSULOSIN HCL [Concomitant]
     Dosage: TAMSULOSIN DCI RATIOPHARMA LP

REACTIONS (2)
  - INTERNATIONAL NORMALISED RATIO INCREASED [None]
  - COMA [None]
